FAERS Safety Report 7208741-8 (Version None)
Quarter: 2011Q1

REPORT INFORMATION
  Report Type: 
  Country: None (occurrence: None)
  Receive Date: 20110104
  Receipt Date: 20101231
  Transmission Date: 20110831
  Serious: Yes (Death)
  Sender: FDA-Public Use
  Company Number: US-ASTRAZENECA-2011SE00114

PATIENT
  Age: 41 Year
  Sex: Male

DRUGS (5)
  1. LISINOPRIL [Suspect]
     Route: 048
  2. BUPROPION [Suspect]
     Route: 048
  3. SIMVASTATIN [Suspect]
     Route: 048
  4. TOPIRAMATE [Suspect]
     Route: 048
  5. CITALOPRAM [Suspect]
     Route: 048

REACTIONS (3)
  - TOXICITY TO VARIOUS AGENTS [None]
  - CARDIO-RESPIRATORY ARREST [None]
  - COMPLETED SUICIDE [None]
